FAERS Safety Report 5526060-2 (Version None)
Quarter: 2007Q4

REPORT INFORMATION
  Report Type: 
  Country: None (occurrence: None)
  Receive Date: 20071120
  Receipt Date: 20071120
  Transmission Date: 20080405
  Serious: Yes (Death, Other)
  Sender: FDA-Public Use
  Company Number: 17821

PATIENT
  Age: 57 Year
  Sex: Female

DRUGS (1)
  1. MITOMYCIN [Suspect]
     Indication: BREAST CANCER

REACTIONS (4)
  - ANAEMIA [None]
  - AZOTAEMIA [None]
  - METASTATIC NEOPLASM [None]
  - THROMBOTIC THROMBOCYTOPENIC PURPURA [None]
